FAERS Safety Report 5225802-3 (Version None)
Quarter: 2007Q1

REPORT INFORMATION
  Report Type: 
  Country: None (occurrence: None)
  Receive Date: 20070130
  Receipt Date: 20070130
  Transmission Date: 20070707
  Serious: Yes (Hospitalization)
  Sender: FDA-Public Use
  Company Number: None

PATIENT
  Age: 36 Year
  Sex: Female
  Weight: 57.6068 kg

DRUGS (1)
  1. AVELOX [Suspect]
     Indication: SINUSITIS
     Dosage: DOSAGE UNKNOWN ONE DOSE PO
     Route: 048
     Dates: start: 20050630, end: 20050630

REACTIONS (9)
  - DRUG HYPERSENSITIVITY [None]
  - DRUG TOXICITY [None]
  - HEART RATE IRREGULAR [None]
  - NO THERAPEUTIC RESPONSE [None]
  - PALPITATIONS [None]
  - PARAESTHESIA [None]
  - PHARYNGEAL OEDEMA [None]
  - PRURITUS [None]
  - SUNBURN [None]
